FAERS Safety Report 10879563 (Version 3)
Quarter: 2015Q2

REPORT INFORMATION
  Report Type: Spontaneous
  Country: US (occurrence: US)
  Receive Date: 20150302
  Receipt Date: 20150505
  Transmission Date: 20150821
  Serious: Yes (Other)
  Sender: FDA-Public Use
  Company Number: US-ASTELLAS-2015US005699

PATIENT
  Age: 53 Year
  Sex: Female

DRUGS (3)
  1. PROGRAF [Suspect]
     Active Substance: TACROLIMUS\TACROLIMUS ANHYDROUS
     Dosage: 6 MG (3 MILLIGRAMS IN THE MORNING AND 3 MILLIGRAMS IN THE EVENING)
     Route: 048
  2. PROGRAF [Suspect]
     Active Substance: TACROLIMUS\TACROLIMUS ANHYDROUS
     Indication: RENAL TRANSPLANT
     Dosage: 7 MG (4MG IN MORNING AND 3 MG IN EVENING)
     Route: 048
  3. PROGRAF [Suspect]
     Active Substance: TACROLIMUS\TACROLIMUS ANHYDROUS
     Indication: TRANSPLANT REJECTION
     Dosage: 7 MG (4MG IN MORNING AND 3 MG IN EVENING)
     Route: 048

REACTIONS (4)
  - Immunosuppressant drug level increased [Unknown]
  - Foot fracture [Recovered/Resolved]
  - Limb injury [Recovered/Resolved]
  - Foot fracture [Recovered/Resolved]

NARRATIVE: CASE EVENT DATE: 20130728
